FAERS Safety Report 6677416-6 (Version None)
Quarter: 2010Q2

REPORT INFORMATION
  Report Type: 
  Country: None (occurrence: None)
  Receive Date: 20100412
  Receipt Date: 20100131
  Transmission Date: 20101027
  Serious: No
  Sender: FDA-Public Use
  Company Number: GU-ALEXION-A201000113

PATIENT
  Sex: Male
  Weight: 81.633 kg

DRUGS (3)
  1. SOLIRIS [Suspect]
     Indication: PAROXYSMAL NOCTURNAL HAEMOGLOBINURIA
     Dosage: UNK
     Route: 042
     Dates: start: 20090930
  2. SOLIRIS [Suspect]
     Dosage: 900 MG, QOW
  3. WARFARIN [Concomitant]
     Dosage: UNK
     Dates: start: 20090701

REACTIONS (2)
  - BLOOD PRESSURE INCREASED [None]
  - WEIGHT INCREASED [None]
